FAERS Safety Report 15075906 (Version 7)
Quarter: 2020Q3

REPORT INFORMATION
  Report Type: Spontaneous
  Country: US (occurrence: US)
  Receive Date: 20180627
  Receipt Date: 20200828
  Transmission Date: 20201102
  Serious: Yes (Other)
  Sender: FDA-Public Use
  Company Number: US-SA-2018SA170386

PATIENT

DRUGS (5)
  1. ATORVASTATIN CALCIUM. [Concomitant]
     Active Substance: ATORVASTATIN CALCIUM
  2. DUPIXENT [Suspect]
     Active Substance: DUPILUMAB
     Indication: DERMATITIS ATOPIC
     Dosage: 300 MG, QOW
     Route: 058
     Dates: start: 20180215
  3. DUPIXENT [Suspect]
     Active Substance: DUPILUMAB
     Indication: PLEURITIC PAIN
  4. TAMSULOSIN [Concomitant]
     Active Substance: TAMSULOSIN
     Indication: PROSTATOMEGALY
     Dosage: 14 MG, QD
     Route: 048
     Dates: start: 20171215
  5. PROAIR HFA [Concomitant]
     Active Substance: ALBUTEROL SULFATE

REACTIONS (7)
  - Pleural effusion [Unknown]
  - Chest X-ray abnormal [Unknown]
  - Product use in unapproved indication [Unknown]
  - Lung opacity [Unknown]
  - Pneumonia [Unknown]
  - Prostatic specific antigen increased [Recovered/Resolved]
  - Therapeutic response unexpected [Unknown]

NARRATIVE: CASE EVENT DATE: 20180215
